FAERS Safety Report 15016028 (Version 1)
Quarter: 2018Q2

REPORT INFORMATION
  Report Type: Spontaneous
  Country: IT (occurrence: IT)
  Receive Date: 20180615
  Receipt Date: 20180615
  Transmission Date: 20180711
  Serious: Yes (Hospitalization)
  Sender: FDA-Public Use
  Company Number: PHHY2018IT021647

PATIENT
  Age: 45 Year
  Sex: Male

DRUGS (4)
  1. ASENAPINE MALEATE [Concomitant]
     Active Substance: ASENAPINE MALEATE
     Indication: PRODUCT USED FOR UNKNOWN INDICATION
     Route: 065
  2. LORAZEPAM. [Concomitant]
     Active Substance: LORAZEPAM
     Indication: PRODUCT USED FOR UNKNOWN INDICATION
     Dosage: 1 MG, UNK
     Route: 048
  3. LAMOTRIGINE. [Suspect]
     Active Substance: LAMOTRIGINE
     Indication: PRODUCT USED FOR UNKNOWN INDICATION
     Dosage: 30 DF, TOTAL
     Route: 048
     Dates: start: 20180128, end: 20180128
  4. SODIUM VALPROATE [Concomitant]
     Active Substance: VALPROATE SODIUM
     Indication: PRODUCT USED FOR UNKNOWN INDICATION
     Dosage: 750 MG, UNK
     Route: 048

REACTIONS (3)
  - Drug abuse [Recovered/Resolved]
  - Thrombocytopenia [Recovered/Resolved]
  - Sinus bradycardia [Recovered/Resolved]

NARRATIVE: CASE EVENT DATE: 20180128
